FAERS Safety Report 8353888-6 (Version None)
Quarter: 2012Q2

REPORT INFORMATION
  Report Type: 
  Country: None (occurrence: None)
  Receive Date: 20120511
  Receipt Date: 20120213
  Transmission Date: 20120825
  Serious: No
  Sender: FDA-Public Use
  Company Number: US-GLAXOSMITHKLINE-A0965592A

PATIENT
  Age: 72 Year
  Sex: Female
  Weight: 90.9 kg

DRUGS (5)
  1. DIOVAN HCT [Concomitant]
  2. HERCEPTIN [Concomitant]
  3. ZOMETA [Concomitant]
  4. CALCIUM WITH VIT. SUPPLEMENT [Concomitant]
  5. TYKERB [Suspect]
     Indication: PRODUCT USED FOR UNKNOWN INDICATION
     Dosage: 1000MG PER DAY
     Route: 048

REACTIONS (2)
  - PERINEAL PAIN [None]
  - PRURITUS GENITAL [None]
